FAERS Safety Report 17893606 (Version 1)
Quarter: 2020Q2

REPORT INFORMATION
  Report Type: Spontaneous
  Country: FR (occurrence: FR)
  Receive Date: 20200615
  Receipt Date: 20200615
  Transmission Date: 20200714
  Serious: Yes (Other)
  Sender: FDA-Public Use
  Company Number: FR-CADILA HEALTHCARE LIMITED-FR-ZYDUS-025584

PATIENT

DRUGS (3)
  1. SERTRALINE [Suspect]
     Active Substance: SERTRALINE HYDROCHLORIDE
     Indication: TOXICITY TO VARIOUS AGENTS
     Dosage: 1.4 GRAM
     Route: 048
     Dates: start: 20171016, end: 20171016
  2. TERCIAN [Suspect]
     Active Substance: CYAMEMAZINE
     Indication: TOXICITY TO VARIOUS AGENTS
     Dosage: 2.23 GRAM
     Route: 048
     Dates: start: 20171016, end: 20171016
  3. PARACETAMOL [Suspect]
     Active Substance: ACETAMINOPHEN
     Indication: TOXICITY TO VARIOUS AGENTS
     Dosage: 48 GRAM
     Route: 048
     Dates: start: 20171016, end: 20171016

REACTIONS (1)
  - Agranulocytosis [Recovered/Resolved]

NARRATIVE: CASE EVENT DATE: 20171020
